FAERS Safety Report 5822671-5 (Version None)
Quarter: 2008Q3

REPORT INFORMATION
  Report Type: 
  Country: None (occurrence: None)
  Receive Date: 20080725
  Receipt Date: 20080716
  Transmission Date: 20090109
  Serious: Yes (Life-Threatening, Hospitalization, Other)
  Sender: FDA-Public Use
  Company Number: GB-BRISTOL-MYERS SQUIBB COMPANY-14241236

PATIENT
  Age: 60 Year
  Sex: Female

DRUGS (5)
  1. CYCLOPHOSPHAMIDE [Suspect]
     Indication: BREAST CANCER
     Route: 065
     Dates: start: 20060601, end: 20061001
  2. EPIRUBICIN [Suspect]
     Indication: BREAST CANCER
     Route: 065
     Dates: start: 20060601, end: 20061001
  3. FLUOROURACIL [Concomitant]
     Indication: BREAST CANCER
     Dates: start: 20070101, end: 20070101
  4. TAXOTERE [Concomitant]
     Dates: start: 20061201, end: 20061201
  5. LETROZOLE [Concomitant]
     Indication: BREAST CANCER
     Route: 048

REACTIONS (2)
  - COMA [None]
  - PROGRESSIVE MULTIFOCAL LEUKOENCEPHALOPATHY [None]
